FAERS Safety Report 18270077 (Version 1)
Quarter: 2020Q3

REPORT INFORMATION
  Report Type: Spontaneous
  Country: CA (occurrence: CA)
  Receive Date: 20200916
  Receipt Date: 20200916
  Transmission Date: 20201103
  Serious: Yes (Other)
  Sender: FDA-Public Use
  Company Number: CA-TEVA-2020-CA-1828002

PATIENT
  Age: 45 Year
  Sex: Female
  Weight: 60 kg

DRUGS (1)
  1. ETHINYLESTRADIOL W/LEVONORGESTREL [Suspect]
     Active Substance: ETHINYL ESTRADIOL\LEVONORGESTREL
     Indication: CONTRACEPTION
     Dosage: 1 DOSAGE FORMS DAILY;
     Route: 048

REACTIONS (3)
  - Maternal exposure during pregnancy [Unknown]
  - Drug ineffective [Unknown]
  - Endometriosis [Unknown]
